FAERS Safety Report 10969670 (Version 2)
Quarter: 2015Q2

REPORT INFORMATION
  Report Type: Spontaneous
  Country: GB (occurrence: GB)
  Receive Date: 20150331
  Receipt Date: 20150418
  Transmission Date: 20150821
  Serious: Yes (Hospitalization, Other)
  Sender: FDA-Public Use
  Company Number: GB-SUN PHARMACEUTICAL INDUSTRIES LTD-2015RR-94780

PATIENT
  Age: 74 Year
  Sex: Female

DRUGS (4)
  1. NICORANDIL [Suspect]
     Active Substance: NICORANDIL
     Indication: HYPERTENSION
     Dosage: UNK
     Route: 048
  2. VERAPAMIL [Suspect]
     Active Substance: VERAPAMIL HYDROCHLORIDE
     Indication: HYPERTENSION
     Dosage: UNK
     Route: 048
  3. FLUOXETINE [Concomitant]
     Active Substance: FLUOXETINE\FLUOXETINE HYDROCHLORIDE
     Indication: DEPRESSION
     Dosage: UNK
     Route: 065
  4. LISINOPRIL. [Suspect]
     Active Substance: LISINOPRIL
     Indication: HYPERTENSION
     Dosage: UNK
     Route: 048

REACTIONS (5)
  - Intentional overdose [Recovered/Resolved]
  - Hypotension [Recovered/Resolved]
  - Blood lactic acid increased [Recovered/Resolved]
  - Metabolic acidosis [Recovered/Resolved]
  - Acute kidney injury [Recovered/Resolved]
